FAERS Safety Report 4917763-9 (Version None)
Quarter: 2006Q1

REPORT INFORMATION
  Report Type: 
  Country: None (occurrence: None)
  Receive Date: 20060221
  Receipt Date: 20060209
  Transmission Date: 20060701
  Serious: Yes (Hospitalization, Other)
  Sender: FDA-Public Use
  Company Number: FR-BRISTOL-MYERS SQUIBB COMPANY-13279559

PATIENT
  Age: 84 Year
  Sex: Female
  Weight: 77 kg

DRUGS (8)
  1. ELISOR TABS [Suspect]
     Route: 048
     Dates: end: 20060115
  2. KREDEX [Suspect]
     Dates: start: 20060109
  3. LASILIX [Suspect]
  4. LOVENOX [Concomitant]
     Dates: start: 20060106, end: 20060109
  5. CALCIPARINE [Concomitant]
     Dates: start: 20051228, end: 20060106
  6. HEPARIN SODIUM [Concomitant]
     Dates: start: 20060110, end: 20060116
  7. INIPOMP [Concomitant]
  8. XANAX [Concomitant]

REACTIONS (4)
  - ACUTE PULMONARY OEDEMA [None]
  - MYOCARDIAL INFARCTION [None]
  - THROMBOCYTOPENIA [None]
  - THROMBOPHLEBITIS [None]
